FAERS Safety Report 5716525-2 (Version None)
Quarter: 2008Q2

REPORT INFORMATION
  Report Type: 
  Country: None (occurrence: None)
  Receive Date: 20080424
  Receipt Date: 20080417
  Transmission Date: 20081010
  Serious: Yes (Death)
  Sender: FDA-Public Use
  Company Number: US-BAXTER-2008BH003741

PATIENT
  Age: 60 Year
  Sex: Male

DRUGS (2)
  1. HEPARIN SODIUM [Suspect]
     Indication: THROMBOSIS PROPHYLAXIS
     Dosage: DOSE UNIT:UNKNOWN
     Route: 010
     Dates: start: 20050801
  2. HEPARIN SODIUM [Suspect]
     Dosage: DOSE UNIT:UNKNOWN
     Route: 010
     Dates: start: 20050801

REACTIONS (9)
  - BALANCE DISORDER [None]
  - COMA [None]
  - DEATH [None]
  - DECREASED APPETITE [None]
  - DIARRHOEA [None]
  - HEADACHE [None]
  - HYPOTENSION [None]
  - NAUSEA [None]
  - UNRESPONSIVE TO STIMULI [None]
